FAERS Safety Report 9404105 (Version 1)
Quarter: 2013Q3

REPORT INFORMATION
  Report Type: Spontaneous
  Country: DE (occurrence: None)
  Receive Date: 20130708
  Receipt Date: 20130708
  Transmission Date: 20140515
  Serious: Yes (Death)
  Sender: FDA-Public Use
  Company Number: 2013036719

PATIENT
  Age: 10 Year
  Sex: Female

DRUGS (4)
  1. IVIG [Suspect]
     Indication: METAPNEUMOVIRUS INFECTION
  2. IVIG [Suspect]
     Indication: STEM CELL TRANSPLANT
  3. RIBAVIRIN (RIBAVIRIN) [Concomitant]
  4. METHYLPREDNISOLONE (METHYLPREDNISOLONE) [Concomitant]

REACTIONS (6)
  - Drug ineffective [None]
  - Off label use [None]
  - Hypercapnia [None]
  - Lung disorder [None]
  - Respiratory disorder [None]
  - General physical health deterioration [None]
